FAERS Safety Report 7934522-3 (Version None)
Quarter: 2011Q4

REPORT INFORMATION
  Report Type: 
  Country: None (occurrence: None)
  Receive Date: 20111122
  Receipt Date: 20111114
  Transmission Date: 20120403
  Serious: Yes (Life-Threatening)
  Sender: FDA-Public Use
  Company Number: GB-JNJFOC-20110908447

PATIENT
  Age: 67 Year
  Sex: Female
  Weight: 80 kg

DRUGS (5)
  1. LEVOTHYROXINE SODIUM [Concomitant]
  2. RIVAROXABAN [Suspect]
     Indication: THROMBOSIS PROPHYLAXIS
     Route: 048
     Dates: start: 20100924, end: 20100926
  3. RIVAROXABAN [Suspect]
     Indication: HIP ARTHROPLASTY
     Route: 048
     Dates: start: 20100924, end: 20100926
  4. SIMVASTATIN [Concomitant]
  5. ESTRADIOL [Suspect]
     Indication: HORMONE REPLACEMENT THERAPY
     Route: 062

REACTIONS (1)
  - PULMONARY EMBOLISM [None]
